FAERS Safety Report 19911014 (Version 1)
Quarter: 2021Q4

REPORT INFORMATION
  Report Type: Spontaneous
  Country: US (occurrence: US)
  Receive Date: 20211004
  Receipt Date: 20211004
  Transmission Date: 20220303
  Serious: Yes (Death)
  Sender: FDA-Public Use
  Company Number: US-ROCHE-2926848

PATIENT
  Sex: Male

DRUGS (7)
  1. ESBRIET [Suspect]
     Active Substance: PIRFENIDONE
     Indication: Pulmonary interstitial emphysema syndrome
     Dosage: 1 TABLET THREE TIMES EVERY DAY WITH FOOD
     Route: 048
  2. LOSARTAN POTASSIUM [Concomitant]
     Active Substance: LOSARTAN POTASSIUM
  3. CLINDAMYCIN [Concomitant]
     Active Substance: CLINDAMYCIN
  4. SULFAMETHOXAZOLE [Concomitant]
     Active Substance: SULFAMETHOXAZOLE
  5. ASPIRIN [Concomitant]
     Active Substance: ASPIRIN
  6. VITAMIN D [Concomitant]
     Active Substance: VITAMIN D NOS
  7. OMEPRAZOLE [Concomitant]
     Active Substance: OMEPRAZOLE

REACTIONS (1)
  - Death [Fatal]
